FAERS Safety Report 8493608-8 (Version None)
Quarter: 2012Q3

REPORT INFORMATION
  Report Type: 
  Country: None (occurrence: None)
  Receive Date: 20120706
  Receipt Date: 20120703
  Transmission Date: 20120928
  Serious: Yes (Hospitalization, Disabling, Other)
  Sender: FDA-Public Use
  Company Number: CA-ROCHE-GNE317386

PATIENT
  Sex: Female

DRUGS (1)
  1. XOLAIR [Suspect]
     Indication: ASTHMA
     Dosage: 150 MG, Q4W
     Route: 058
     Dates: start: 20050613

REACTIONS (10)
  - RESPIRATORY SYNCYTIAL VIRUS INFECTION [None]
  - CYST [None]
  - FATIGUE [None]
  - SINUSITIS [None]
  - PYREXIA [None]
  - NEUTROPHIL COUNT DECREASED [None]
  - BREAST CANCER STAGE II [None]
  - DIARRHOEA [None]
  - VOMITING [None]
  - FEELING ABNORMAL [None]
